FAERS Safety Report 16357082 (Version 2)
Quarter: 2019Q2

REPORT INFORMATION
  Report Type: Spontaneous
  Country: JP (occurrence: JP)
  Receive Date: 20190527
  Receipt Date: 20190606
  Transmission Date: 20190711
  Serious: Yes (Hospitalization, Other)
  Sender: FDA-Public Use
  Company Number: JP-VIIV HEALTHCARE LIMITED-JP2019JPN090354

PATIENT
  Age: 32 Year
  Sex: Male

DRUGS (1)
  1. TRIUMEQ [Suspect]
     Active Substance: ABACAVIR SULFATE\DOLUTEGRAVIR SODIUM\LAMIVUDINE
     Indication: ACUTE HIV INFECTION
     Dosage: UNK
     Route: 048

REACTIONS (6)
  - Meningitis viral [Unknown]
  - Headache [Recovering/Resolving]
  - Blood bilirubin increased [Recovered/Resolved]
  - Retroviral rebound syndrome [Unknown]
  - Hepatitis A [Recovering/Resolving]
  - Pyrexia [Recovering/Resolving]
